FAERS Safety Report 15483578 (Version 1)
Quarter: 2018Q4

REPORT INFORMATION
  Report Type: Spontaneous
  Country: US (occurrence: US)
  Receive Date: 20181003
  Receipt Date: 20181003
  Transmission Date: 20190205
  Serious: No
  Sender: FDA-Public Use
  Company Number: None

PATIENT
  Age: 86 Year
  Sex: Female

DRUGS (1)
  1. SYNVISC-ONE [Suspect]
     Active Substance: HYLAN G-F 20
     Indication: ROTATOR CUFF SYNDROME
     Dates: start: 201803

REACTIONS (1)
  - No adverse event [None]

NARRATIVE: CASE EVENT DATE: 20180802
